FAERS Safety Report 8317155-9 (Version None)
Quarter: 2012Q2

REPORT INFORMATION
  Report Type: 
  Country: None (occurrence: None)
  Receive Date: 20120427
  Receipt Date: 20120419
  Transmission Date: 20120825
  Serious: Yes (Other)
  Sender: FDA-Public Use
  Company Number: US-PFIZER INC-2012072805

PATIENT
  Sex: Female
  Weight: 85 kg

DRUGS (20)
  1. NEURONTIN [Suspect]
     Dosage: 100 MG, 6 PER DAY
  2. ASPIRIN [Concomitant]
     Indication: CARDIOMEGALY
     Dosage: UNK
  3. NEURONTIN [Suspect]
     Indication: SPINAL FRACTURE
     Dosage: UNK
     Route: 048
  4. COREG [Concomitant]
     Indication: HYPERTENSION
     Dosage: 10 MG
  5. NEURONTIN [Suspect]
     Dosage: UNK
  6. CARAC [Concomitant]
     Indication: CARDIOMEGALY
     Dosage: UNK
  7. NEURONTIN [Suspect]
     Indication: NERVE INJURY
     Dosage: 700MG IN MORNING AND 300MG AT NIGHT
     Route: 048
  8. KLONOPIN [Suspect]
     Indication: NEUROPATHY PERIPHERAL
     Dosage: 0.5 MG, 2X/DAY
  9. ASPIRIN [Concomitant]
     Indication: ARRHYTHMIA
  10. NEURONTIN [Suspect]
     Dosage: 300 MG, 1X/DAY (3 OF 100 MG ONCE A DAY)
  11. CARAC [Concomitant]
     Indication: ARRHYTHMIA
  12. NEURONTIN [Suspect]
     Dosage: 300 MG, SIX OF THOSE A DAY
  13. LIPIDIL [Concomitant]
     Dosage: UNK
  14. ACETAMINOPHEN [Concomitant]
     Dosage: UNK
  15. CLONAZEPAM [Concomitant]
     Dosage: 0.5 MG, UNK
  16. NEURONTIN [Suspect]
     Indication: LUMBAR SPINAL STENOSIS
     Dosage: 500 MG, 2X/DAY
     Route: 048
  17. NEURONTIN [Suspect]
     Indication: NEUROPATHY PERIPHERAL
     Dosage: 300 MG, 4X/DAY
     Route: 048
  18. NEURONTIN [Suspect]
     Dosage: 300 MG, UNK
     Route: 048
  19. ZOCOR [Concomitant]
     Indication: BLOOD CHOLESTEROL INCREASED
     Dosage: UNK
  20. SITAGLIPTIN AND METFORMIN HYDROCHLORIDE [Concomitant]
     Indication: TYPE 2 DIABETES MELLITUS
     Dosage: 500/50 MG, UNK

REACTIONS (29)
  - HEART RATE INCREASED [None]
  - VISION BLURRED [None]
  - TREMOR [None]
  - CHEST PAIN [None]
  - PYREXIA [None]
  - LETHARGY [None]
  - IRRITABILITY [None]
  - FATIGUE [None]
  - PAIN [None]
  - HYPOGLYCAEMIA [None]
  - DRY MOUTH [None]
  - FEELING ABNORMAL [None]
  - DIARRHOEA [None]
  - NIGHTMARE [None]
  - ASTHENIA [None]
  - IMPAIRED WORK ABILITY [None]
  - FEAR [None]
  - AGITATION [None]
  - NAUSEA [None]
  - HYPERSOMNIA [None]
  - DECREASED APPETITE [None]
  - HEADACHE [None]
  - MOVEMENT DISORDER [None]
  - RESPIRATORY DISORDER [None]
  - SOMNOLENCE [None]
  - MALAISE [None]
  - DIZZINESS [None]
  - MIDDLE INSOMNIA [None]
  - EMOTIONAL DISORDER [None]
